FAERS Safety Report 5263758-8 (Version None)
Quarter: 2007Q1

REPORT INFORMATION
  Report Type: 
  Country: None (occurrence: None)
  Receive Date: 20061213
  Receipt Date: 20060607
  Transmission Date: 20070707
  Serious: Yes (Other)
  Sender: FDA-Public Use
  Company Number: 2006US06575

PATIENT
  Age: 71 Year
  Sex: Male
  Weight: 78.471 kg

DRUGS (18)
  1. IRESSA [Suspect]
     Indication: LUNG NEOPLASM MALIGNANT
     Dosage: 250 MG DAILY PO
     Route: 048
     Dates: start: 20031017, end: 20060428
  2. TARCEVA [Concomitant]
  3. XANAX [Concomitant]
  4. LOMOTIL [Concomitant]
  5. PLETAL [Concomitant]
  6. LOVASTATIN [Concomitant]
  7. GEMFIBROZIL [Concomitant]
  8. NEURONTIN [Concomitant]
  9. ACYCLOVIR [Concomitant]
  10. TOPROL-XL [Concomitant]
  11. RANITIDINE [Concomitant]
  12. AMLODIPINE [Concomitant]
  13. HALCION [Concomitant]
  14. CELEBREX [Concomitant]
  15. IMODIUM [Concomitant]
  16. ASPIRIN [Concomitant]
  17. NORVASC [Concomitant]
  18. TRIAMCINOLONE [Concomitant]

REACTIONS (5)
  - DIARRHOEA [None]
  - DISEASE PROGRESSION [None]
  - DRY SKIN [None]
  - HAIR TEXTURE ABNORMAL [None]
  - RASH [None]
